FAERS Safety Report 4356032-5 (Version None)
Quarter: 2004Q2

REPORT INFORMATION
  Report Type: 
  Country: None (occurrence: None)
  Receive Date: 20040511
  Receipt Date: 20040504
  Transmission Date: 20050107
  Serious: Yes (Other)
  Sender: FDA-Public Use
  Company Number: DE-ROCHE-366711

PATIENT
  Sex: Female

DRUGS (2)
  1. ROFERON-A [Suspect]
     Indication: MYELOPROLIFERATIVE DISORDER
     Dosage: 3X3MIO IE
     Route: 065
  2. ROFERON-A [Suspect]
     Dosage: 2X4.5 MIO IE
     Route: 065

REACTIONS (4)
  - GASTROINTESTINAL DISORDER [None]
  - GENERAL PHYSICAL HEALTH DETERIORATION [None]
  - HEPATIC FAILURE [None]
  - NAUSEA [None]
